FAERS Safety Report 5981649-1 (Version None)
Quarter: 2008Q4

REPORT INFORMATION
  Report Type: 
  Country: None (occurrence: None)
  Receive Date: 20081202
  Receipt Date: 20081118
  Transmission Date: 20090506
  Serious: Yes (Death)
  Sender: FDA-Public Use
  Company Number: KV200800305

PATIENT
  Age: 45 Year
  Sex: Male

DRUGS (2)
  1. MORPHINE SULFATE [Suspect]
     Indication: DRUG USE FOR UNKNOWN INDICATION
     Dosage: 15 MG, 1 TAB, QD, ORAL
     Route: 048
     Dates: start: 20080801, end: 20080801
  2. UNSPECIFIED PAIN PILL [Concomitant]

REACTIONS (3)
  - DISEASE PROGRESSION [None]
  - HEPATIC CIRRHOSIS [None]
  - PRODUCT QUALITY ISSUE [None]
